FAERS Safety Report 8804182 (Version 2)
Quarter: 2014Q2

REPORT INFORMATION
  Report Type: Spontaneous
  Country: US (occurrence: US)
  Receive Date: 20120924
  Receipt Date: 20140408
  Transmission Date: 20141212
  Serious: Yes (Death)
  Sender: FDA-Public Use
  Company Number: US-BAYER-2012-098256

PATIENT
  Age: 42 Year
  Sex: Female

DRUGS (8)
  1. YAZ [Suspect]
     Indication: CONTRACEPTION
  2. YASMIN [Suspect]
  3. OCELLA [Suspect]
  4. FEXOFENADINE HYDROCHLORIDE [Concomitant]
  5. ALLEGRA [Concomitant]
  6. FLUTICASONE PROPIONATE [Concomitant]
  7. ATENOLOL [Concomitant]
  8. FLUOCINONIDE [Concomitant]

REACTIONS (2)
  - Pulmonary embolism [Fatal]
  - Injury [None]
